FAERS Safety Report 5771304-5 (Version None)
Quarter: 2008Q2

REPORT INFORMATION
  Report Type: 
  Country: None (occurrence: None)
  Receive Date: 20080613
  Receipt Date: 20080606
  Transmission Date: 20081010
  Serious: Yes (Hospitalization)
  Sender: FDA-Public Use
  Company Number: HU-BAYER-200819903GPV

PATIENT
  Age: 41 Year
  Sex: Female

DRUGS (1)
  1. MIRENA [Suspect]
     Indication: CONTRACEPTION
     Route: 015
     Dates: start: 20080603, end: 20080604

REACTIONS (4)
  - ANAPHYLACTIC SHOCK [None]
  - LIP SWELLING [None]
  - RASH [None]
  - SWELLING FACE [None]
